FAERS Safety Report 6502512-3 (Version None)
Quarter: 2009Q4

REPORT INFORMATION
  Report Type: 
  Country: None (occurrence: None)
  Receive Date: 20091217
  Receipt Date: 20091209
  Transmission Date: 20100525
  Serious: Yes (Hospitalization)
  Sender: FDA-Public Use
  Company Number: GB-RANBAXY-2008RR-15354

PATIENT
  Age: 85 Year
  Sex: Male

DRUGS (11)
  1. RAMIPRIL [Suspect]
     Route: 048
  2. CHAMPIX [Suspect]
     Indication: SMOKING CESSATION THERAPY
     Dosage: 0.5 MG, BID
     Route: 048
  3. ALENDRONIC ACID [Concomitant]
     Dosage: UNK
     Route: 065
  4. ASPIRIN [Concomitant]
     Route: 065
  5. DILTIAZEM [Concomitant]
     Route: 065
  6. GLYCERYL TRINITRATE [Concomitant]
     Dosage: UNK
     Route: 064
  7. LANSOPRAZOLE [Concomitant]
     Route: 065
  8. PREDNISOLONE [Concomitant]
     Route: 065
  9. QUININE SULPHATE [Concomitant]
     Route: 065
  10. SERETIDE [Concomitant]
     Route: 055
  11. SIMVASTATIN [Concomitant]
     Route: 065

REACTIONS (3)
  - AMNESIA [None]
  - HEAD INJURY [None]
  - SYNCOPE [None]
